FAERS Safety Report 18765953 (Version 5)
Quarter: 2021Q1

REPORT INFORMATION
  Report Type: Spontaneous
  Country: BR (occurrence: BR)
  Receive Date: 20210120
  Receipt Date: 20210325
  Transmission Date: 20210419
  Serious: Yes (Other)
  Sender: FDA-Public Use
  Company Number: BR-CELLTRION INC.-2021BR000436

PATIENT

DRUGS (22)
  1. REMSIMA [Suspect]
     Active Substance: INFLIXIMAB
     Dosage: 2 FLASK (EVERY FLASK WITH 100MG) EVERY 2 MONTHS
     Route: 042
     Dates: start: 20200529
  2. REMSIMA [Suspect]
     Active Substance: INFLIXIMAB
     Dosage: 2 FLASK (EVERY FLASK WITH 100MG) EVERY 2 MONTHS
     Route: 042
     Dates: start: 20200724
  3. REMSIMA [Suspect]
     Active Substance: INFLIXIMAB
     Dosage: 2 FLASK (EVERY FLASK WITH 100MG) EVERY 2 MONTHS
     Route: 042
     Dates: start: 20181221
  4. REMSIMA [Suspect]
     Active Substance: INFLIXIMAB
     Dosage: 2 FLASK (EVERY FLASK WITH 100MG) EVERY 2 MONTHS
     Route: 042
     Dates: start: 20190215
  5. REMSIMA [Suspect]
     Active Substance: INFLIXIMAB
     Dosage: 2 FLASK (EVERY FLASK WITH 100MG) EVERY 2 MONTHS
     Route: 042
     Dates: start: 20200918
  6. REMSIMA [Suspect]
     Active Substance: INFLIXIMAB
     Dosage: 2 FLASK (EVERY FLASK WITH 100MG) EVERY 2 MONTHS
     Route: 042
     Dates: start: 20181020
  7. REMSIMA [Suspect]
     Active Substance: INFLIXIMAB
     Dosage: 2 FLASK (EVERY FLASK WITH 100MG) EVERY 2 MONTHS
     Route: 042
     Dates: start: 20181029
  8. REMSIMA [Suspect]
     Active Substance: INFLIXIMAB
     Dosage: 2 FLASK (EVERY FLASK WITH 100MG) EVERY 2 MONTHS
     Route: 042
     Dates: start: 20190905
  9. SULFASALAZINE. [Concomitant]
     Active Substance: SULFASALAZINE
     Indication: PRODUCT USED FOR UNKNOWN INDICATION
     Dosage: 5 TABLETS A DAY
     Route: 048
  10. REMSIMA [Suspect]
     Active Substance: INFLIXIMAB
     Dosage: 2 FLASK (EVERY FLASK WITH 100MG) EVERY 2 MONTHS
     Route: 042
     Dates: start: 20190413
  11. REMSIMA [Suspect]
     Active Substance: INFLIXIMAB
     Dosage: 2 FLASK (EVERY FLASK WITH 100MG) EVERY 2 MONTHS
     Route: 042
     Dates: start: 20191009
  12. REMSIMA [Suspect]
     Active Substance: INFLIXIMAB
     Dosage: 2 FLASK (EVERY FLASK WITH 100MG) EVERY 2 MONTHS
     Route: 042
     Dates: start: 20191211
  13. REMSIMA [Suspect]
     Active Substance: INFLIXIMAB
     Dosage: 2 FLASK (EVERY FLASK WITH 100MG) EVERY 2 MONTHS
     Route: 042
     Dates: start: 20190608
  14. AZATHIOPRINE. [Concomitant]
     Active Substance: AZATHIOPRINE
     Indication: PRODUCT USED FOR UNKNOWN INDICATION
     Dosage: 2 TABLETS A DAY
     Route: 048
  15. REMICADE [Suspect]
     Active Substance: INFLIXIMAB
     Indication: COLITIS ULCERATIVE
     Dosage: UNK
     Dates: start: 20210108
  16. REMSIMA [Suspect]
     Active Substance: INFLIXIMAB
     Dosage: 2 FLASK (EVERY FLASK WITH 100MG) EVERY 2 MONTHS
     Route: 042
     Dates: start: 20200110
  17. REMSIMA [Suspect]
     Active Substance: INFLIXIMAB
     Dosage: 2 FLASK (EVERY FLASK WITH 100MG) EVERY 2 MONTHS
     Route: 042
     Dates: start: 20200203
  18. REMSIMA [Suspect]
     Active Substance: INFLIXIMAB
     Dosage: 2 FLASK (EVERY FLASK WITH 100MG) EVERY 2 MONTHS
     Route: 042
     Dates: start: 20201113
  19. FOLIC ACID. [Concomitant]
     Active Substance: FOLIC ACID
     Indication: PRODUCT USED FOR UNKNOWN INDICATION
     Dosage: 1 TABLET
     Route: 048
  20. REMSIMA [Suspect]
     Active Substance: INFLIXIMAB
     Indication: COLITIS ULCERATIVE
     Dosage: 2 FLASK (EVERY FLASK WITH 100MG) EVERY 2 MONTHS
     Route: 042
     Dates: start: 20181003
  21. REMSIMA [Suspect]
     Active Substance: INFLIXIMAB
     Dosage: 2 FLASK (EVERY FLASK WITH 100MG) EVERY 2 MONTHS
     Route: 042
     Dates: start: 20210305
  22. CALCIUM CARBONATE. [Concomitant]
     Active Substance: CALCIUM CARBONATE
     Indication: PRODUCT USED FOR UNKNOWN INDICATION
     Dosage: 1 TABLET A DAY
     Route: 048

REACTIONS (5)
  - Colitis ulcerative [Not Recovered/Not Resolved]
  - Arrhythmia [Unknown]
  - Overdose [Unknown]
  - Drug ineffective [Not Recovered/Not Resolved]
  - Product use issue [Unknown]

NARRATIVE: CASE EVENT DATE: 202010
